FAERS Safety Report 7953743-7 (Version None)
Quarter: 2011Q4

REPORT INFORMATION
  Report Type: 
  Country: None (occurrence: None)
  Receive Date: 20111129
  Receipt Date: 20111114
  Transmission Date: 20120403
  Serious: Yes (Death, Hospitalization, Other)
  Sender: FDA-Public Use
  Company Number: 2011MA016418

PATIENT
  Age: 61 Year
  Sex: Female
  Weight: 141.5223 kg

DRUGS (14)
  1. DIGOXIN [Suspect]
     Indication: ATRIAL FLUTTER
     Dosage: .25 MG
     Dates: start: 20080201, end: 20080401
  2. PLAVIX [Concomitant]
  3. LEVAQUIN [Concomitant]
  4. CARVEDO;P; [Concomitant]
  5. KLOR-CON [Concomitant]
  6. LISINOPRIL [Concomitant]
  7. ASPIRIN [Concomitant]
  8. LOPRESSOR [Concomitant]
  9. MULTIPLE VITAMINS [Concomitant]
  10. GLYBURIDE [Concomitant]
  11. WARFARIN SODIUM [Concomitant]
  12. FUROSEMIDE [Concomitant]
  13. ALDACTONE [Concomitant]
  14. SIMVASTATIN [Concomitant]

REACTIONS (27)
  - PAIN [None]
  - ATRIAL FLUTTER [None]
  - CORONARY ARTERY OCCLUSION [None]
  - MULTIPLE INJURIES [None]
  - NAUSEA [None]
  - DECREASED APPETITE [None]
  - HYPOMAGNESAEMIA [None]
  - DIABETES MELLITUS [None]
  - TOXICITY TO VARIOUS AGENTS [None]
  - VOMITING [None]
  - CORONARY ARTERY DISEASE [None]
  - OEDEMA PERIPHERAL [None]
  - AMAUROSIS FUGAX [None]
  - HYPERLIPIDAEMIA [None]
  - PHOTOPHOBIA [None]
  - PALPITATIONS [None]
  - DIARRHOEA [None]
  - DIZZINESS [None]
  - FATIGUE [None]
  - CARDIAC FAILURE CONGESTIVE [None]
  - HYPERTENSION [None]
  - ECONOMIC PROBLEM [None]
  - VISUAL IMPAIRMENT [None]
  - CARDIAC VALVE DISEASE [None]
  - OBESITY [None]
  - TRICUSPID VALVE INCOMPETENCE [None]
  - RENAL FAILURE ACUTE [None]
